FAERS Safety Report 5663062-X (Version None)
Quarter: 2008Q1

REPORT INFORMATION
  Report Type: 
  Country: None (occurrence: None)
  Receive Date: 20080313
  Receipt Date: 20080305
  Transmission Date: 20080703
  Serious: Yes (Life-Threatening)
  Sender: FDA-Public Use
  Company Number: GB-PFIZER INC-2008021173

PATIENT
  Age: 50 Year
  Sex: Female
  Weight: 92 kg

DRUGS (2)
  1. CHANTIX [Suspect]
     Indication: SMOKING CESSATION THERAPY
     Route: 048
     Dates: start: 20071121, end: 20071224
  2. CLIMAGEST [Concomitant]
     Route: 048

REACTIONS (8)
  - BLINDNESS [None]
  - DIZZINESS [None]
  - DYSGEUSIA [None]
  - HEADACHE [None]
  - MALAISE [None]
  - MOVEMENT DISORDER [None]
  - PAIN IN EXTREMITY [None]
  - SENSATION OF HEAVINESS [None]
